FAERS Safety Report 9271925 (Version 1)
Quarter: 2013Q2

REPORT INFORMATION
  Report Type: Spontaneous
  Country: US (occurrence: US)
  Receive Date: 20130506
  Receipt Date: 20130506
  Transmission Date: 20140414
  Serious: Yes (Death, Life-Threatening)
  Sender: FDA-Public Use
  Company Number: US-PFIZER INC-0007111002PHAMED

PATIENT
  Age: 54 Year
  Sex: Male

DRUGS (47)
  1. HALCION [Suspect]
     Indication: SLEEP DISORDER
     Dosage: UNK
     Route: 048
     Dates: start: 1985, end: 198711
  2. XANAX [Suspect]
     Indication: ANXIETY
     Dosage: UNIT DOSE: NULL OR RANGE (LOW TO HI): 00000.25 TO 00000.50 MG FREQUENCY: 001 EVERY NULL SECONDS
     Route: 048
     Dates: start: 198702
  3. XANAX [Suspect]
     Route: 048
  4. FIORINAL [Concomitant]
  5. SYNALGOS-DC [Concomitant]
     Dosage: UNK
     Dates: start: 198708
  6. ELAVIL [Concomitant]
  7. TRIAVIL [Concomitant]
  8. ASENDIN [Concomitant]
     Dosage: UNK
     Dates: start: 198612
  9. TENORMIN [Concomitant]
  10. TENORETIC [Concomitant]
  11. AKINETON [Concomitant]
  12. WELLBUTRIN [Concomitant]
     Dosage: UNK
     Dates: start: 19920711, end: 19920713
  13. BUSPAR [Concomitant]
     Dosage: UNK
     Dates: start: 19920711
  14. FIORICET [Concomitant]
  15. CAPOTEN [Concomitant]
  16. THORAZINE [Concomitant]
  17. WYGESIC [Concomitant]
     Dosage: UNK
     Dates: start: 1985
  18. VALIUM [Concomitant]
  19. SINEQUAN [Concomitant]
     Dosage: UNK
     Dates: start: 19920713
  20. PROSOM [Concomitant]
     Dosage: UNK
     Dates: start: 19920711
  21. PROZAC [Concomitant]
     Dosage: UNK
     Dates: start: 198802
  22. DALMANE [Concomitant]
     Dosage: UNK
     Dates: start: 198703
  23. LASIX [Concomitant]
  24. DIABETA [Concomitant]
  25. GLUCOTROL [Concomitant]
  26. MAXZIDE [Concomitant]
  27. VICODIN [Concomitant]
     Dosage: UNK
     Dates: start: 198604
  28. TUSSIONEX SUSPENSION [Concomitant]
  29. TOFRANIL [Concomitant]
  30. INSULIN [Concomitant]
  31. ORUDIS [Concomitant]
     Dosage: UNK
     Dates: start: 1988
  32. ATIVAN [Concomitant]
     Dosage: UNK
     Dates: start: 198602
  33. SKELAXIN [Concomitant]
  34. NITROSTAT [Concomitant]
  35. CYLERT [Concomitant]
     Dosage: UNK
     Dates: start: 1985
  36. PLEGINE [Concomitant]
     Dosage: UNK
     Dates: start: 198505
  37. IONAMIN [Concomitant]
     Dosage: UNK
     Dates: start: 198612
  38. FELDENE [Concomitant]
     Dosage: UNK
     Dates: start: 19890501
  39. DECANAMINE SR [Concomitant]
     Dosage: UNK
     Dates: start: 198703
  40. DORAL [Concomitant]
  41. ZANTAC [Concomitant]
     Dosage: UNK
     Dates: start: 1988
  42. ZOLOFT [Concomitant]
  43. RESTORIL [Concomitant]
  44. DESYREL [Concomitant]
  45. TRAZODONE [Concomitant]
  46. TRILISATE [Concomitant]
  47. ASPERCREME [Concomitant]

REACTIONS (5)
  - Aggression [Fatal]
  - Hallucination [Fatal]
  - Paranoia [Fatal]
  - Completed suicide [Fatal]
  - Overdose [Fatal]
